FAERS Safety Report 14971925 (Version 2)
Quarter: 2018Q2

REPORT INFORMATION
  Report Type: Spontaneous
  Country: BR (occurrence: BR)
  Receive Date: 20180605
  Receipt Date: 20180619
  Transmission Date: 20180711
  Serious: Yes (Other)
  Sender: FDA-Public Use
  Company Number: BR-BIOGEN-2018BI00559630

PATIENT
  Age: 34 Year
  Sex: Female

DRUGS (5)
  1. INIBINE (ISOXSUPRINE HYDROCHLORIDE) [Concomitant]
     Indication: PRODUCT USED FOR UNKNOWN INDICATION
     Route: 065
  2. AVONEX [Suspect]
     Active Substance: INTERFERON BETA-1A
     Indication: PATERNAL EXPOSURE TIMING UNSPECIFIED
     Route: 030
     Dates: start: 2014
  3. AVONEX [Suspect]
     Active Substance: INTERFERON BETA-1A
     Route: 030
     Dates: end: 201712
  4. AVONEX [Suspect]
     Active Substance: INTERFERON BETA-1A
     Route: 030
     Dates: end: 20180121
  5. INHIBIN [Concomitant]
     Indication: PROPHYLAXIS OF ABORTION
     Route: 065

REACTIONS (2)
  - Caesarean section [Recovered/Resolved]
  - Paternal exposure during pregnancy [Recovered/Resolved]

NARRATIVE: CASE EVENT DATE: 2015
